FAERS Safety Report 7101258-0 (Version None)
Quarter: 2010Q4

REPORT INFORMATION
  Report Type: 
  Country: None (occurrence: None)
  Receive Date: 20101115
  Receipt Date: 20100301
  Transmission Date: 20110411
  Serious: No
  Sender: FDA-Public Use
  Company Number: US-PFIZER INC-2010012750

PATIENT
  Sex: Female

DRUGS (1)
  1. CLEOCIN [Suspect]
     Indication: ROSACEA
     Route: 061

REACTIONS (3)
  - DRUG INEFFECTIVE [None]
  - DRY SKIN [None]
  - SKIN EXFOLIATION [None]
